FAERS Safety Report 4471910-4 (Version None)
Quarter: 2004Q4

REPORT INFORMATION
  Report Type: 
  Country: None (occurrence: None)
  Receive Date: 20041007
  Receipt Date: 20040927
  Transmission Date: 20050328
  Serious: No
  Sender: FDA-Public Use
  Company Number: DE-2004-031627

PATIENT
  Sex: Female

DRUGS (1)
  1. BETAFERON (INTERFERON BETA-1B) INJECTION 250 UG [Suspect]
     Dosage: SUBCUTANEOUS
     Route: 058
     Dates: start: 20020101, end: 20040101

REACTIONS (1)
  - BREAST CANCER FEMALE [None]
